FAERS Safety Report 13374766 (Version 1)
Quarter: 2017Q1

REPORT INFORMATION
  Report Type: Spontaneous
  Country: US (occurrence: US)
  Receive Date: 20170327
  Receipt Date: 20170327
  Transmission Date: 20170429
  Serious: Yes (Hospitalization, Disabling)
  Sender: FDA-Public Use
  Company Number: None

PATIENT
  Age: 50 Year
  Sex: Female
  Weight: 97.61 kg

DRUGS (33)
  1. METHYLPREDNISOLONE. [Concomitant]
     Active Substance: METHYLPREDNISOLONE
  2. PERMETHRIN. [Concomitant]
     Active Substance: PERMETHRIN
  3. DIPHENHYDRAMINE. [Concomitant]
     Active Substance: DIPHENHYDRAMINE
  4. TRIAMCINOLONE CREAM [Concomitant]
     Active Substance: TRIAMCINOLONE
  5. BACLOFEN. [Concomitant]
     Active Substance: BACLOFEN
  6. DICLOFENAC [Concomitant]
     Active Substance: DICLOFENAC
  7. LYRICA [Suspect]
     Active Substance: PREGABALIN
     Indication: PAIN
     Dates: start: 20160418, end: 20161215
  8. NYSTATIN CREAM [Concomitant]
     Active Substance: NYSTATIN
  9. PREDNISONE. [Concomitant]
     Active Substance: PREDNISONE
  10. Q-DRYL [Concomitant]
     Active Substance: DIPHENHYDRAMINE HYDROCHLORIDE
  11. ALBUTEROL SULFATE SYRUP [Concomitant]
     Active Substance: ALBUTEROL SULFATE
  12. CHLORHEXIDINE [Concomitant]
     Active Substance: CHLORHEXIDINE
  13. PROAIR ORAL INH [Concomitant]
  14. QVAR ORAL INHALER [Concomitant]
  15. HYDROCORTISONE. [Concomitant]
     Active Substance: HYDROCORTISONE
  16. LIDOCAINE. [Concomitant]
     Active Substance: LIDOCAINE
  17. NYSTOP 100,000 U/GM TOP POWDER [Concomitant]
  18. VENTOLIN HFA INH [Concomitant]
  19. ACETAMINOPHEN/COD #3 [Concomitant]
  20. BENZONATATE. [Concomitant]
     Active Substance: BENZONATATE
  21. CYCLOBENZAPRINE [Concomitant]
     Active Substance: CYCLOBENZAPRINE
  22. OYSCO 500/D [Concomitant]
  23. WAL-DRYL [Concomitant]
     Active Substance: DIPHENHYDRAMINE HYDROCHLORIDE
  24. CIPROFLOXACIN. [Concomitant]
     Active Substance: CIPROFLOXACIN
  25. FLUTICASONE. [Concomitant]
     Active Substance: FLUTICASONE
  26. HYDROCODONE/ACETAMINOPHEN [Concomitant]
     Active Substance: ACETAMINOPHEN\HYDROCODONE
  27. LEVOFLOXACIN. [Concomitant]
     Active Substance: LEVOFLOXACIN
  28. LORATADINE. [Concomitant]
     Active Substance: LORATADINE
  29. MELOXICAM. [Concomitant]
     Active Substance: MELOXICAM
  30. NEO/POLY/HC 1% OTIC SUSPGREEN [Concomitant]
  31. PRAVASTATIN. [Concomitant]
     Active Substance: PRAVASTATIN
  32. PROMETHAZINE DM SYRUP [Concomitant]
  33. CAPSAICIN CREAM [Concomitant]

REACTIONS (2)
  - Muscle spasms [None]
  - Pain in extremity [None]

NARRATIVE: CASE EVENT DATE: 20161203
